FAERS Safety Report 8037452-4 (Version None)
Quarter: 2012Q1

REPORT INFORMATION
  Report Type: 
  Country: None (occurrence: None)
  Receive Date: 20120111
  Receipt Date: 20120106
  Transmission Date: 20120608
  Serious: Yes (Hospitalization)
  Sender: FDA-Public Use
  Company Number: FR-PFIZER INC-2012004054

PATIENT
  Age: 75 Year
  Sex: Female

DRUGS (4)
  1. VANCOMYCIN HCL [Suspect]
     Dosage: UNK
     Route: 042
     Dates: start: 20111209, end: 20111212
  2. CEFTAZIDIME SODIUM [Concomitant]
     Indication: ULCER
     Dosage: UNK
     Route: 042
     Dates: start: 20111129, end: 20111209
  3. PIPERACILLIN AND TAZOBACTAM [Suspect]
     Indication: LUNG DISORDER
     Dosage: UNK
     Route: 042
     Dates: start: 20111208
  4. CIPROFLOXACIN [Concomitant]
     Indication: ULCER
     Dosage: UNK
     Route: 042
     Dates: start: 20111129, end: 20111209

REACTIONS (1)
  - RENAL TUBULAR NECROSIS [None]
